FAERS Safety Report 6865066-8 (Version None)
Quarter: 2010Q3

REPORT INFORMATION
  Report Type: 
  Country: None (occurrence: None)
  Receive Date: 20100721
  Receipt Date: 20080411
  Transmission Date: 20110219
  Serious: No
  Sender: FDA-Public Use
  Company Number: US-PFIZER INC-2008033308

PATIENT
  Sex: Female
  Weight: 54.1 kg

DRUGS (2)
  1. CHANTIX [Suspect]
     Indication: SMOKING CESSATION THERAPY
     Dates: start: 20080409
  2. WELLBUTRIN [Concomitant]

REACTIONS (2)
  - CRYING [None]
  - MOOD SWINGS [None]
